FAERS Safety Report 19654628 (Version 1)
Quarter: 2021Q3

REPORT INFORMATION
  Report Type: Spontaneous
  Country: TR (occurrence: TR)
  Receive Date: 20210804
  Receipt Date: 20210804
  Transmission Date: 20211014
  Serious: Yes (Other)
  Sender: FDA-Public Use
  Company Number: TR-SUN PHARMACEUTICAL INDUSTRIES LTD-2021R1-306520

PATIENT
  Age: 49 Year
  Sex: Male

DRUGS (5)
  1. LOW?MOLECULAR WEIGHT HEPARIN [Suspect]
     Active Substance: UNSPECIFIED INGREDIENT
     Indication: PROPHYLAXIS
     Dosage: 0.4 INTERNATIONAL UNIT
     Route: 058
  2. HYDROXYCHLOROQUINE [Suspect]
     Active Substance: HYDROXYCHLOROQUINE
     Indication: COVID-19
     Dosage: 2X400 MG LOADING DOSE, 2X200 MG MAINTENANCE DOSE, FOR 5 DAYS
     Route: 048
  3. MOXIFLOXACIN. [Suspect]
     Active Substance: MOXIFLOXACIN
     Indication: COVID-19
     Dosage: 400 MILLIGRAM, QD
     Route: 042
  4. OSELTAMIVIR [Suspect]
     Active Substance: OSELTAMIVIR
     Indication: COVID-19
     Dosage: 75 MILLIGRAM, BID
     Route: 048
  5. SULPHAMETHOXAZOLE/TRIMETHOPRIM [Suspect]
     Active Substance: SULFAMETHOXAZOLE\TRIMETHOPRIM
     Indication: PROPHYLAXIS
     Dosage: UNK
     Route: 065

REACTIONS (1)
  - Retinal detachment [Unknown]
